FAERS Safety Report 8686600 (Version 2)
Quarter: 2012Q4

REPORT INFORMATION
  Report Type: 
  Country: US (occurrence: US)
  Receive Date: 20120726
  Receipt Date: 20120929
  Transmission Date: 20130627
  Serious: No
  Sender: FDA-Public Use
  Company Number: US-009507513-1207USA008831

PATIENT
  Age: 63 Year
  Sex: Female

DRUGS (3)
  1. PEGINTRON [Suspect]
     Indication: HEPATITIS C
     Dosage: 120 Microgram, qw
     Dates: start: 201107
  2. REBETOL [Suspect]
  3. TELAPREVIR [Concomitant]

REACTIONS (3)
  - Malaise [Unknown]
  - Inappropriate schedule of drug administration [Unknown]
  - Product quality issue [Recovered/Resolved]
